FAERS Safety Report 24385829 (Version 1)
Quarter: 2024Q4

REPORT INFORMATION
  Report Type: Spontaneous
  Country: US (occurrence: None)
  Receive Date: 20241001
  Receipt Date: 20241001
  Transmission Date: 20250115
  Serious: Yes (Hospitalization)
  Sender: Public
  Company Number: None

PATIENT
  Age: 29 Year
  Sex: Female

DRUGS (1)
  1. HADLIMA [Suspect]
     Active Substance: ADALIMUMAB-BWWD
     Indication: Crohn^s disease
     Dosage: 40 MG EVERY 2 WEEKS SUBCUTANEOUS
     Route: 058

REACTIONS (3)
  - Abscess intestinal [None]
  - Therapy cessation [None]
  - Nonspecific reaction [None]

NARRATIVE: CASE EVENT DATE: 20240907
